FAERS Safety Report 6252565-5 (Version None)
Quarter: 2009Q3

REPORT INFORMATION
  Report Type: 
  Country: None (occurrence: None)
  Receive Date: 20090701
  Receipt Date: 20090618
  Transmission Date: 20100115
  Serious: Yes (Other)
  Sender: FDA-Public Use
  Company Number: US-BAYER-200921467NA

PATIENT
  Age: 50 Year
  Sex: Female
  Weight: 61 kg

DRUGS (4)
  1. AVELOX [Suspect]
     Indication: UPPER RESPIRATORY TRACT INFECTION
     Dosage: TOTAL DAILY DOSE: 400 MG  UNIT DOSE: 400 MG
     Route: 048
     Dates: start: 20090409, end: 20090416
  2. RESTASIS [Concomitant]
  3. CALCIUM [Concomitant]
  4. STOOL SOFTENER [Concomitant]

REACTIONS (3)
  - TENDON PAIN [None]
  - TENDON RUPTURE [None]
  - TENDONITIS [None]
